FAERS Safety Report 10948234 (Version 1)
Quarter: 2015Q1

REPORT INFORMATION
  Report Type: Spontaneous
  Country: US (occurrence: US)
  Receive Date: 20150324
  Receipt Date: 20150324
  Transmission Date: 20150721
  Serious: No
  Sender: FDA-Public Use
  Company Number: US-BIOGENIDEC-2015BI029323

PATIENT
  Age: 64 Year
  Sex: Female
  Weight: 68 kg

DRUGS (9)
  1. OSCAL [Concomitant]
     Active Substance: CALCIUM CARBONATE
  2. DYAZIDE [Concomitant]
     Active Substance: HYDROCHLOROTHIAZIDE\TRIAMTERENE
  3. CENTRUM SILVER [Concomitant]
     Active Substance: VITAMINS
  4. TECFIDERA [Suspect]
     Active Substance: DIMETHYL FUMARATE
     Indication: MULTIPLE SCLEROSIS
     Route: 048
     Dates: start: 201310
  5. FISH OIL [Concomitant]
     Active Substance: FISH OIL
  6. LOVASTATIN. [Concomitant]
     Active Substance: LOVASTATIN
  7. AMLODIPINE [Concomitant]
     Active Substance: AMLODIPINE BESYLATE
  8. RAMIPRIL. [Concomitant]
     Active Substance: RAMIPRIL
  9. AMPYRA [Concomitant]
     Active Substance: DALFAMPRIDINE
     Route: 048
     Dates: start: 201010

REACTIONS (5)
  - Balance disorder [Recovered/Resolved]
  - Flushing [Not Recovered/Not Resolved]
  - Gastrooesophageal reflux disease [Recovered/Resolved]
  - Blood pressure increased [Recovered/Resolved]
  - Dizziness [Recovered/Resolved]

NARRATIVE: CASE EVENT DATE: 201310
